FAERS Safety Report 16938614 (Version 1)
Quarter: 2019Q4

REPORT INFORMATION
  Report Type: Spontaneous
  Country: US (occurrence: US)
  Receive Date: 20191019
  Receipt Date: 20191019
  Transmission Date: 20200122
  Serious: Yes (Other)
  Sender: FDA-Public Use
  Company Number: US-TEVA-2019-US-1126058

PATIENT
  Age: 82 Year
  Sex: Female

DRUGS (3)
  1. RESTASIS [Interacting]
     Active Substance: CYCLOSPORINE
     Indication: DRY EYE
     Dosage: THE SITE OF ADMINISTRATION WAS REPORTED AS: EACH EYE; 2 GTT
     Route: 047
     Dates: end: 20190409
  2. ATORVASTATIN [Suspect]
     Active Substance: ATORVASTATIN
     Indication: BLOOD CHOLESTEROL
     Route: 048
  3. SOTALOL. [Interacting]
     Active Substance: SOTALOL
     Indication: ATRIAL FIBRILLATION
     Route: 048

REACTIONS (4)
  - Swelling face [Unknown]
  - Drug interaction [Unknown]
  - Swelling [Unknown]
  - Eye pruritus [Unknown]
